FAERS Safety Report 25780728 (Version 2)
Quarter: 2025Q4

REPORT INFORMATION
  Report Type: Spontaneous
  Country: CA (occurrence: CA)
  Receive Date: 20250909
  Receipt Date: 20251103
  Transmission Date: 20260118
  Serious: Yes (Hospitalization, Other)
  Sender: PFIZER
  Company Number: CA-PFIZER INC-202500177991

PATIENT
  Age: 46 Year
  Sex: Male

DRUGS (2)
  1. IXIFI [Suspect]
     Active Substance: INFLIXIMAB-QBTX
     Indication: Psoriasis
     Dosage: 400 MG, EVERY 8 WEEKS
     Route: 042
     Dates: start: 20250708
  2. IXIFI [Suspect]
     Active Substance: INFLIXIMAB-QBTX
     Dosage: 400 MG, EVERY 8 WEEKS
     Route: 042
     Dates: start: 20250905

REACTIONS (4)
  - Loss of consciousness [Recovering/Resolving]
  - Forearm fracture [Recovering/Resolving]
  - Road traffic accident [Recovering/Resolving]
  - Eye contusion [Recovering/Resolving]

NARRATIVE: CASE EVENT DATE: 20250814
